FAERS Safety Report 5194387-2 (Version None)
Quarter: 2006Q4

REPORT INFORMATION
  Report Type: 
  Country: None (occurrence: None)
  Receive Date: 20061228
  Receipt Date: 20061219
  Transmission Date: 20070319
  Serious: Yes (Other)
  Sender: FDA-Public Use
  Company Number: BR-PFIZER INC-2006155079

PATIENT
  Sex: Male

DRUGS (2)
  1. MINOXIDIL [Suspect]
     Indication: HYPERTENSION
     Dosage: FREQ:EVERYDAY
     Route: 048
  2. ATENOLOL [Concomitant]
     Route: 048

REACTIONS (1)
  - RENAL TRANSPLANT [None]
